FAERS Safety Report 10341912 (Version 3)
Quarter: 2014Q3

REPORT INFORMATION
  Report Type: Report from Study
  Country: JP (occurrence: JP)
  Receive Date: 20140725
  Receipt Date: 20140805
  Transmission Date: 20150326
  Serious: Yes (Hospitalization)
  Sender: FDA-Public Use
  Company Number: JP-BAYER-2014-103759

PATIENT
  Age: 65 Year
  Sex: Male
  Weight: 66 kg

DRUGS (15)
  1. RADIUM-223 DICHLORIDE [Suspect]
     Active Substance: RADIUM RA-223 DICHLORIDE
     Indication: PROSTATE CANCER STAGE IV
     Dosage: 50 KBQ/KG EVERY 28 DAYS
     Route: 042
     Dates: start: 20140528, end: 20140625
  2. TANKARU [Concomitant]
     Indication: GASTRITIS PROPHYLAXIS
     Dosage: 500 MG, QD
     Route: 048
     Dates: start: 20130125
  3. FERROMIA [Concomitant]
     Active Substance: FERROUS CITRATE
     Indication: ANAEMIA
     Dosage: 100 MG, QD
     Route: 048
     Dates: start: 20140430
  4. CLARITH [Concomitant]
     Active Substance: CLARITHROMYCIN
     Indication: PERIODONTITIS
     Dosage: 200 MG, BID
     Route: 048
     Dates: start: 20140508
  5. AFTACH [Concomitant]
     Active Substance: TRIAMCINOLONE
     Indication: STOMATITIS
     Dosage: DAILY DOSE 25 ?G
     Route: 061
     Dates: start: 20140404
  6. CELECOXIB. [Concomitant]
     Active Substance: CELECOXIB
     Indication: BONE PAIN
     Dosage: 100 MG, BID
     Route: 048
     Dates: start: 20140226
  7. MAGLAX [Concomitant]
     Active Substance: MAGNESIUM OXIDE
     Indication: CONSTIPATION
     Dosage: DAILY DOSE 500 MG
     Route: 048
     Dates: start: 20110708
  8. SOLANAX [Concomitant]
     Active Substance: ALPRAZOLAM
     Indication: ANXIETY
     Dosage: 0.8 MG, BID
     Route: 048
     Dates: start: 20110819
  9. DEGARELIX [Concomitant]
     Active Substance: DEGARELIX
     Indication: PROSTATE CANCER
     Dosage: 80 MG, Q1MON
     Dates: start: 20130619
  10. RADIUM-223 DICHLORIDE [Suspect]
     Active Substance: RADIUM RA-223 DICHLORIDE
     Indication: METASTASES TO BONE
  11. PARIET [Concomitant]
     Active Substance: RABEPRAZOLE SODIUM
     Indication: GASTRITIS PROPHYLAXIS
     Dosage: 20 MG, QD
     Route: 048
     Dates: start: 20110708
  12. EDIROL [Concomitant]
     Active Substance: ELDECALCITOL
     Indication: METASTASES TO BONE
     Dosage: 0.75 MG, QD
     Route: 048
     Dates: start: 20130202
  13. MUCOSTA [Concomitant]
     Active Substance: REBAMIPIDE
     Indication: GASTRITIS PROPHYLAXIS
     Dosage: 100 MG, TID
     Route: 048
     Dates: start: 20131225
  14. CLARITH [Concomitant]
     Active Substance: CLARITHROMYCIN
     Indication: OSTEOMYELITIS
  15. OXYCONTIN [Concomitant]
     Active Substance: OXYCODONE HYDROCHLORIDE
     Indication: BONE PAIN
     Dosage: DAILY DOSE 5 MG
     Route: 048
     Dates: start: 20140226

REACTIONS (1)
  - Bone pain [Recovered/Resolved]

NARRATIVE: CASE EVENT DATE: 20140709
